FAERS Safety Report 8241947-8 (Version None)
Quarter: 2012Q1

REPORT INFORMATION
  Report Type: 
  Country: None (occurrence: None)
  Receive Date: 20120329
  Receipt Date: 20120320
  Transmission Date: 20120608
  Serious: Yes (Hospitalization)
  Sender: FDA-Public Use
  Company Number: US-BIOGENIDEC-2011BI002075

PATIENT
  Age: 57 Year
  Sex: Female
  Weight: 136 kg

DRUGS (4)
  1. BACLOFEN [Concomitant]
     Indication: PRODUCT USED FOR UNKNOWN INDICATION
  2. LEVOTHYROXINE SODIUM [Concomitant]
     Indication: THYROID DISORDER
  3. TYSABRI [Suspect]
     Indication: MULTIPLE SCLEROSIS
     Route: 042
     Dates: end: 20120313
  4. TYSABRI [Suspect]
     Route: 042
     Dates: start: 20090428, end: 20101217

REACTIONS (1)
  - BREAST CANCER [None]
